FAERS Safety Report 5825292-3 (Version None)
Quarter: 2008Q3

REPORT INFORMATION
  Report Type: 
  Country: None (occurrence: None)
  Receive Date: 20080722
  Receipt Date: 20070828
  Transmission Date: 20090109
  Serious: Yes (Hospitalization)
  Sender: FDA-Public Use
  Company Number: 2007BI018271

PATIENT
  Age: 41 Year
  Sex: Female
  Weight: 108.8633 kg

DRUGS (6)
  1. AVONEX [Suspect]
     Indication: MULTIPLE SCLEROSIS
     Dosage: 30 UG;QW;IM ; 30 UG;QW;IM
     Route: 030
     Dates: start: 20010101, end: 20050101
  2. AVONEX [Suspect]
     Indication: MULTIPLE SCLEROSIS
     Dosage: 30 UG;QW;IM ; 30 UG;QW;IM
     Route: 030
     Dates: start: 20050101
  3. ZOLOFT [Concomitant]
  4. OXYCODONE HCL [Concomitant]
  5. VITAMIN TAB [Concomitant]
  6. ASPIRIN [Concomitant]

REACTIONS (5)
  - CONVULSION [None]
  - DRUG HYPERSENSITIVITY [None]
  - MULTIPLE SCLEROSIS [None]
  - MULTIPLE SCLEROSIS RELAPSE [None]
  - WEIGHT INCREASED [None]
